FAERS Safety Report 16288358 (Version 5)
Quarter: 2019Q3

REPORT INFORMATION
  Report Type: Spontaneous
  Country: CA (occurrence: CA)
  Receive Date: 20190508
  Receipt Date: 20190913
  Transmission Date: 20191004
  Serious: Yes (Other)
  Sender: FDA-Public Use
  Company Number: CA-CELLTRION INC.-2018CA019184

PATIENT

DRUGS (17)
  1. INFLECTRA [Suspect]
     Active Substance: INFLIXIMAB-DYYB
     Dosage: 7.5 MG/KG, CYCLIC (EVERY 7 WEEKS)
     Route: 042
     Dates: start: 20190511
  2. INFLECTRA [Suspect]
     Active Substance: INFLIXIMAB-DYYB
     Dosage: 458 MG, CYCLIC (EVERY 7 WEEKS)
     Route: 042
     Dates: start: 20180707, end: 20190309
  3. INFLECTRA [Suspect]
     Active Substance: INFLIXIMAB-DYYB
     Dosage: 450 MG, (THEN EVERY 8 WEEKS)
     Route: 042
     Dates: start: 20180120
  4. INFLECTRA [Suspect]
     Active Substance: INFLIXIMAB-DYYB
     Dosage: 458 MG, (EVERY 8 WEEKS)
     Route: 042
  5. INFLECTRA [Suspect]
     Active Substance: INFLIXIMAB-DYYB
     Dosage: 458 MG, EVERY 7 WEEKS
     Route: 042
     Dates: start: 20190309
  6. ACETAMINOPHEN. [Concomitant]
     Active Substance: ACETAMINOPHEN
     Indication: PREMEDICATION
     Dosage: 650 MG, UNK
     Route: 048
  7. HYDROCORTISONE. [Concomitant]
     Active Substance: HYDROCORTISONE
     Indication: PREMEDICATION
     Dosage: 100 MG, UNK
     Route: 042
  8. INFLECTRA [Suspect]
     Active Substance: INFLIXIMAB-DYYB
     Dosage: 458 MG, EVERY 7 WEEKS
     Route: 042
     Dates: start: 20180707
  9. DIPHENHYDRAMINE. [Concomitant]
     Active Substance: DIPHENHYDRAMINE
     Indication: PREMEDICATION
     Dosage: 50 MG, UNK
     Route: 048
  10. INFLECTRA [Suspect]
     Active Substance: INFLIXIMAB-DYYB
     Indication: PSORIASIS
     Dosage: 450 MG, EVERY 8 WEEKS
     Route: 042
     Dates: start: 20170304, end: 20180708
  11. INFLECTRA [Suspect]
     Active Substance: INFLIXIMAB-DYYB
     Dosage: 450 MG, EVERY 8 WEEKS
     Route: 042
     Dates: start: 20180512
  12. INFLECTRA [Suspect]
     Active Substance: INFLIXIMAB-DYYB
     Dosage: 458 MG, EVERY 7 WEEKS
     Route: 042
     Dates: start: 20180825
  13. INFLECTRA [Suspect]
     Active Substance: INFLIXIMAB-DYYB
     Dosage: 450 MG, CYCLIC (EVERY 8 WEEKS)
     Route: 042
     Dates: start: 20170812, end: 20180512
  14. INFLECTRA [Suspect]
     Active Substance: INFLIXIMAB-DYYB
     Dosage: 300 MG, CYCLIC (Q 0, 2 AND 6 WEEKS, THEN EVERY 8 WEEKS)
     Route: 042
     Dates: start: 20170304, end: 20190610
  15. INFLECTRA [Suspect]
     Active Substance: INFLIXIMAB-DYYB
     Dosage: 7.5 MG/KG, CYCLIC (EVERY 7 WEEKS)
     Route: 042
     Dates: start: 20190511
  16. INFLECTRA [Suspect]
     Active Substance: INFLIXIMAB-DYYB
     Indication: PSORIASIS
     Dosage: 450 MG, EVERY 8 WEEKS
     Route: 042
     Dates: start: 20180120
  17. INFLECTRA [Suspect]
     Active Substance: INFLIXIMAB-DYYB
     Dosage: 7.5 MG/KG, CYCLIC (EVERY 7 WEEKS)
     Route: 042
     Dates: start: 20190706

REACTIONS (13)
  - Groin pain [Unknown]
  - Inappropriate schedule of product administration [Unknown]
  - Nephrolithiasis [Unknown]
  - Pain in extremity [Unknown]
  - Off label use [Unknown]
  - Abdominal pain lower [Not Recovered/Not Resolved]
  - Dizziness [Unknown]
  - Off label use [Unknown]
  - Vomiting [Unknown]
  - Product use issue [Unknown]
  - Incorrect dosage administered [Unknown]
  - Therapeutic product effect incomplete [Unknown]
  - Heart rate irregular [Unknown]

NARRATIVE: CASE EVENT DATE: 20190420
